FAERS Safety Report 18416414 (Version 1)
Quarter: 2020Q4

REPORT INFORMATION
  Report Type: Spontaneous
  Country: DE (occurrence: DE)
  Receive Date: 20201022
  Receipt Date: 20201022
  Transmission Date: 20210114
  Serious: Yes (Life-Threatening, Other)
  Sender: FDA-Public Use
  Company Number: DE-MYLANLABS-2020M1088666

PATIENT
  Age: 70 Year
  Sex: Male
  Weight: 100 kg

DRUGS (8)
  1. PROPOFOL. [Concomitant]
     Active Substance: PROPOFOL
     Indication: ANALGESIC THERAPY
  2. SUFENTANIL [Concomitant]
     Active Substance: SUFENTANIL
     Indication: ANALGESIC THERAPY
  3. KLACID [Suspect]
     Active Substance: CLARITHROMYCIN
     Indication: PNEUMONIA
     Dosage: 500 MILLIGRAM, BID
     Route: 042
     Dates: start: 20200914, end: 20200916
  4. UNACID                             /00917901/ [Suspect]
     Active Substance: AMPICILLIN SODIUM\SULBACTAM SODIUM
     Indication: PNEUMONIA
     Dosage: 3 GRAM, Q8H
     Route: 042
     Dates: start: 20200914
  5. REMDESIVIR. [Suspect]
     Active Substance: REMDESIVIR
     Indication: COVID-19 PNEUMONIA
     Dosage: 100 MILLIGRAM, QD,  (1X T?GLICH)
     Route: 042
  6. REMDESIVIR. [Suspect]
     Active Substance: REMDESIVIR
     Dosage: 200 MILLIGRAM, TOTAL (200MG IN 250MG NACL UBER 2 STUNDEN INITIAL, DANACH 100MG UBER 2 STUNDEN)
     Route: 042
     Dates: start: 20200915
  7. PROPOFOL. [Concomitant]
     Active Substance: PROPOFOL
     Indication: SEDATIVE THERAPY
     Dosage: 10 MG/ML
     Route: 042
     Dates: start: 20200916
  8. SUFENTANIL [Concomitant]
     Active Substance: SUFENTANIL
     Indication: SEDATIVE THERAPY
     Dosage: 0.015 MG/ML
     Route: 042
     Dates: start: 20200916

REACTIONS (4)
  - Anaemia [Unknown]
  - Hypotension [Unknown]
  - Hepatotoxicity [Unknown]
  - Hypoalbuminaemia [Unknown]

NARRATIVE: CASE EVENT DATE: 20200914
